FAERS Safety Report 7011002-3 (Version None)
Quarter: 2010Q3

REPORT INFORMATION
  Report Type: 
  Country: None (occurrence: None)
  Receive Date: 20100922
  Receipt Date: 20100922
  Transmission Date: 20110219
  Serious: Yes (Life-Threatening, Hospitalization)
  Sender: FDA-Public Use
  Company Number: None

PATIENT
  Sex: Female
  Weight: 73.4827 kg

DRUGS (9)
  1. CIPROFLOXACIN [Suspect]
     Indication: URINARY TRACT INFECTION
     Dosage: 2 TABLETS 2 DAILY FOR 3 DAYS PO 1 TABLET 1 DAILY UNTIL DONE PO
     Route: 048
     Dates: start: 20100302, end: 20100304
  2. CIPROFLOXACIN [Suspect]
     Indication: URINARY TRACT INFECTION
     Dosage: 2 TABLETS 2 DAILY FOR 3 DAYS PO 1 TABLET 1 DAILY UNTIL DONE PO
     Route: 048
     Dates: start: 20100305, end: 20100313
  3. LASIX [Concomitant]
  4. METOPROLOL TARTRATE [Concomitant]
  5. COUMADIN [Concomitant]
  6. RANITIDINE [Concomitant]
  7. LIBRAX [Concomitant]
  8. NORPACE CR [Concomitant]
  9. CORDARONE [Concomitant]

REACTIONS (15)
  - ARTHRALGIA [None]
  - ASTHENIA [None]
  - ATRIAL FIBRILLATION [None]
  - DEHYDRATION [None]
  - DRUG LEVEL INCREASED [None]
  - DYSPNOEA [None]
  - HALLUCINATION, AUDITORY [None]
  - JOINT SWELLING [None]
  - MENISCUS LESION [None]
  - MOBILITY DECREASED [None]
  - MUSCULOSKELETAL PAIN [None]
  - OEDEMA PERIPHERAL [None]
  - PAIN IN EXTREMITY [None]
  - TACHYCARDIA [None]
  - WEIGHT DECREASED [None]
